FAERS Safety Report 6267646-X (Version None)
Quarter: 2009Q3

REPORT INFORMATION
  Report Type: 
  Country: None (occurrence: None)
  Receive Date: 20090714
  Receipt Date: 20090707
  Transmission Date: 20100115
  Serious: Yes (Other)
  Sender: FDA-Public Use
  Company Number: US-ASTRAZENECA-2009UW18685

PATIENT
  Sex: Female

DRUGS (1)
  1. SEROQUEL [Suspect]
     Route: 048
     Dates: start: 20070101

REACTIONS (8)
  - CONVULSION [None]
  - FALL [None]
  - HALLUCINATION [None]
  - LIVER INJURY [None]
  - LOSS OF CONSCIOUSNESS [None]
  - PANCREATITIS [None]
  - PSYCHOTIC DISORDER [None]
  - TREMOR [None]
